FAERS Safety Report 20597070 (Version 1)
Quarter: 2022Q1

REPORT INFORMATION
  Report Type: Spontaneous
  Country: US (occurrence: None)
  Receive Date: 20220315
  Receipt Date: 20220315
  Transmission Date: 20220423
  Serious: No
  Sender: FDA-Public Use
  Company Number: None

PATIENT
  Sex: Male

DRUGS (1)
  1. BENLYSTA [Suspect]
     Active Substance: BELIMUMAB
     Indication: Dermatomyositis
     Dosage: FREQUENCY : WEEKLY;?
     Route: 058
     Dates: start: 20220223

REACTIONS (1)
  - Drug ineffective [None]
